FAERS Safety Report 10406506 (Version 1)
Quarter: 2014Q3

REPORT INFORMATION
  Report Type: Spontaneous
  Country: ID (occurrence: ID)
  Receive Date: 20140825
  Receipt Date: 20140825
  Transmission Date: 20150326
  Serious: Yes (Hospitalization)
  Sender: FDA-Public Use
  Company Number: PHHY2014ID104080

PATIENT
  Age: 16 Year
  Sex: Male

DRUGS (2)
  1. DAUNORUBICIN [Suspect]
     Active Substance: DAUNORUBICIN
     Indication: ACUTE LYMPHOCYTIC LEUKAEMIA
     Dosage: 40 MG, UNK
     Route: 042
  2. DEXAMETHASONE. [Suspect]
     Active Substance: DEXAMETHASONE
     Indication: ACUTE LYMPHOCYTIC LEUKAEMIA

REACTIONS (20)
  - Conjunctival pallor [Unknown]
  - Diabetes mellitus [Unknown]
  - Blood glucose increased [Unknown]
  - Differential white blood cell count abnormal [Unknown]
  - Anaemia [Unknown]
  - Cough [Unknown]
  - Adrenal suppression [Unknown]
  - Leukocytosis [Unknown]
  - Headache [Unknown]
  - Mastoiditis [Unknown]
  - Sleep disorder [Unknown]
  - Acute lymphocytic leukaemia recurrent [Unknown]
  - Thrombocytopenia [Unknown]
  - Otitis externa [Unknown]
  - Pyrexia [Unknown]
  - Bronchitis [Unknown]
  - Tachypnoea [Unknown]
  - Asthenia [Unknown]
  - Otitis media [Unknown]
  - Blood cortisol decreased [Unknown]
